FAERS Safety Report 5951594-6 (Version None)
Quarter: 2008Q4

REPORT INFORMATION
  Report Type: 
  Country: None (occurrence: None)
  Receive Date: 20081113
  Receipt Date: 20081105
  Transmission Date: 20090506
  Serious: Yes (Hospitalization)
  Sender: FDA-Public Use
  Company Number: PHEH2008US09349

PATIENT
  Sex: Female
  Weight: 53.968 kg

DRUGS (8)
  1. RECLAST [Suspect]
     Indication: OSTEOPOROSIS POSTMENOPAUSAL
     Dosage: 5MG YEARLY
     Dates: start: 20081008, end: 20081008
  2. NEXIUM [Concomitant]
     Dosage: 40 MG, UNK
  3. CALCIUM WITH VITAMIN D [Concomitant]
     Dosage: 500 MG, UNK
  4. INDERAL [Concomitant]
     Dosage: 40 MG, BID
  5. LEVOTHYROXINE SODIUM [Concomitant]
     Dosage: 0.05 MG, QD
  6. FLAGYL [Concomitant]
     Indication: HELICOBACTER GASTRITIS
  7. CLARITHROMYCIN [Concomitant]
     Indication: HELICOBACTER GASTRITIS
  8. PREVACID [Concomitant]
     Indication: HELICOBACTER GASTRITIS

REACTIONS (6)
  - ASTHENIA [None]
  - DYSTONIA [None]
  - HELICOBACTER GASTRITIS [None]
  - NAUSEA [None]
  - PAIN [None]
  - TREMOR [None]
